FAERS Safety Report 5159303-8 (Version None)
Quarter: 2006Q4

REPORT INFORMATION
  Report Type: 
  Country: None (occurrence: None)
  Receive Date: 20061115
  Receipt Date: 20061102
  Transmission Date: 20070319
  Serious: Yes (Hospitalization, Other)
  Sender: FDA-Public Use
  Company Number: 200610827

PATIENT
  Age: 30 Year
  Sex: Female

DRUGS (4)
  1. IMMUNE GLOBULIN INTRAVENOUS (HUMAN) [Suspect]
     Indication: ASTHENIA
     Dosage: 2 MG/KG QD IV
     Route: 042
  2. IMMUNE GLOBULIN INTRAVENOUS (HUMAN) [Suspect]
     Indication: FACIAL PALSY
     Dosage: 2 MG/KG QD IV
     Route: 042
  3. IMMUNE GLOBULIN INTRAVENOUS (HUMAN) [Suspect]
     Indication: PARAESTHESIA
     Dosage: 2 MG/KG QD IV
     Route: 042
  4. PREDNISONE TAB [Concomitant]

REACTIONS (9)
  - ASTHENIA [None]
  - ERYTHEMA [None]
  - FACIAL PALSY [None]
  - NEUROLOGICAL SYMPTOM [None]
  - PARAESTHESIA [None]
  - PURPURA [None]
  - RASH MACULO-PAPULAR [None]
  - THROMBOSIS [None]
  - VASCULITIS [None]
